FAERS Safety Report 16310322 (Version 1)
Quarter: 2019Q2

REPORT INFORMATION
  Report Type: Spontaneous
  Country: US (occurrence: US)
  Receive Date: 20190514
  Receipt Date: 20190514
  Transmission Date: 20190711
  Serious: Yes (Hospitalization)
  Sender: FDA-Public Use
  Company Number: US-UNICHEM PHARMACEUTICALS (USA) INC-UCM201905-000159

PATIENT
  Age: 31 Year
  Sex: Female

DRUGS (10)
  1. APIXABAN [Concomitant]
     Active Substance: APIXABAN
     Indication: PRODUCT USED FOR UNKNOWN INDICATION
  2. VALSARTAN. [Suspect]
     Active Substance: VALSARTAN
     Dosage: FROM 49/51 MG BY MOUTH TWICE DAILY
     Route: 048
  3. SACUBITRIL [Suspect]
     Active Substance: SACUBITRIL
     Dosage: 49/51 MG BY MOUTH TWICE DAILY
     Route: 048
  4. LEVOTHYROXINE. [Concomitant]
     Active Substance: LEVOTHYROXINE
     Indication: PRODUCT USED FOR UNKNOWN INDICATION
  5. METFORMIN [Concomitant]
     Active Substance: METFORMIN HYDROCHLORIDE
     Indication: PRODUCT USED FOR UNKNOWN INDICATION
     Route: 048
  6. SACUBITRIL [Suspect]
     Active Substance: SACUBITRIL
     Indication: PRODUCT USED FOR UNKNOWN INDICATION
     Dosage: FROM 24/26 MG BY MOUTH TWICE DAILY
     Route: 048
  7. VALSARTAN. [Suspect]
     Active Substance: VALSARTAN
     Indication: PRODUCT USED FOR UNKNOWN INDICATION
     Dosage: FROM 24/26 MG BY MOUTH TWICE DAILY
     Route: 048
  8. METOPROLOL SUCCINATE. [Concomitant]
     Active Substance: METOPROLOL SUCCINATE
     Indication: PRODUCT USED FOR UNKNOWN INDICATION
  9. FUROSEMIDE. [Concomitant]
     Active Substance: FUROSEMIDE
     Indication: PRODUCT USED FOR UNKNOWN INDICATION
  10. METOLAZONE. [Concomitant]
     Active Substance: METOLAZONE
     Indication: PRODUCT USED FOR UNKNOWN INDICATION

REACTIONS (9)
  - Paranoia [Recovered/Resolved]
  - Hallucination [Recovered/Resolved]
  - Psychiatric symptom [Recovered/Resolved]
  - Drug intolerance [Recovered/Resolved]
  - Aggression [Recovered/Resolved]
  - Delusion [Recovered/Resolved]
  - Sleep disorder [Recovered/Resolved]
  - Confabulation [Recovered/Resolved]
  - Restlessness [Recovered/Resolved]
